FAERS Safety Report 4390870-8 (Version None)
Quarter: 2004Q3

REPORT INFORMATION
  Report Type: 
  Country: None (occurrence: None)
  Receive Date: 20040702
  Receipt Date: 20040702
  Transmission Date: 20050211
  Serious: Yes (Other)
  Sender: FDA-Public Use
  Company Number: None

PATIENT
  Age: 63 Year
  Sex: Male
  Weight: 108.8633 kg

DRUGS (1)
  1. PRILOSEC OTC [Suspect]
     Indication: HYPERCHLORHYDRIA
     Dosage: 1 TABLET DAILY
     Dates: start: 20040401, end: 20040410

REACTIONS (2)
  - ABDOMINAL PAIN [None]
  - FLANK PAIN [None]
